FAERS Safety Report 15841955 (Version 1)
Quarter: 2018Q4

REPORT INFORMATION
  Report Type: Spontaneous
  Country: US (occurrence: US)
  Receive Date: 20181225
  Receipt Date: 20181225
  Transmission Date: 20190205
  Serious: No
  Sender: FDA-Public Use
  Company Number: None

PATIENT
  Age: 34 Year
  Sex: Female
  Weight: 93.15 kg

DRUGS (1)
  1. ALKA-SELTZER PLUS MAXIMUM STRENGTH COLD AND COUGH [Suspect]
     Active Substance: ACETAMINOPHEN\CHLORPHENIRAMINE MALEATE\DEXTROMETHORPHAN HYDROBROMIDE\PHENYLEPHRINE HYDROCHLORIDE
     Indication: NASOPHARYNGITIS
     Dosage: ?          QUANTITY:20 DF DOSAGE FORM;?
     Route: 048
     Dates: start: 20181221, end: 20181224

REACTIONS (3)
  - Memory impairment [None]
  - Sudden onset of sleep [None]
  - Feeling abnormal [None]

NARRATIVE: CASE EVENT DATE: 20181221
